FAERS Safety Report 13262973 (Version 2)
Quarter: 2017Q2

REPORT INFORMATION
  Report Type: Spontaneous
  Country: US (occurrence: US)
  Receive Date: 20170223
  Receipt Date: 20170523
  Transmission Date: 20170830
  Serious: No
  Sender: FDA-Public Use
  Company Number: US-JNJFOC-20170123869

PATIENT
  Sex: Female
  Weight: 91.63 kg

DRUGS (1)
  1. INVEGA SUSTENNA [Suspect]
     Active Substance: PALIPERIDONE PALMITATE
     Indication: SCHIZOPHRENIA
     Route: 030
     Dates: start: 20130228

REACTIONS (3)
  - Injection site rash [Unknown]
  - Injection site nodule [Recovered/Resolved]
  - Injection site mass [Unknown]
